FAERS Safety Report 23080351 (Version 1)
Quarter: 2023Q4

REPORT INFORMATION
  Report Type: Spontaneous
  Country: US (occurrence: None)
  Receive Date: 20231018
  Receipt Date: 20231018
  Transmission Date: 20240109
  Serious: Yes (Death)
  Sender: FDA-Public Use
  Company Number: None

PATIENT
  Age: 43 Year
  Sex: Male

DRUGS (1)
  1. HERBALS\MITRAGYNINE [Suspect]
     Active Substance: HERBALS\MITRAGYNINE

REACTIONS (7)
  - Tremor [None]
  - Substance use [None]
  - Circulatory collapse [None]
  - Fall [None]
  - Loss of consciousness [None]
  - Legal problem [None]
  - Toxicity to various agents [None]

NARRATIVE: CASE EVENT DATE: 20201119
